FAERS Safety Report 5354878-8 (Version None)
Quarter: 2007Q2

REPORT INFORMATION
  Report Type: 
  Country: None (occurrence: None)
  Receive Date: 20070611
  Receipt Date: 20070604
  Transmission Date: 20071010
  Serious: Yes (Death)
  Sender: FDA-Public Use
  Company Number: 2007-158383-NL

PATIENT
  Sex: Male

DRUGS (4)
  1. REMERON [Suspect]
     Dosage: DF
     Dates: start: 20060301, end: 20060301
  2. LUNESTA [Suspect]
     Dosage: DF
     Dates: start: 20060301, end: 20060301
  3. DIAZEPAM [Suspect]
     Dosage: DF
     Dates: start: 20060301
  4. ALCOHOL [Suspect]

REACTIONS (5)
  - ALCOHOL INTERACTION [None]
  - DRUG INTERACTION [None]
  - DRUG LEVEL ABOVE THERAPEUTIC [None]
  - DRUG LEVEL BELOW THERAPEUTIC [None]
  - TOXICOLOGIC TEST ABNORMAL [None]
